FAERS Safety Report 23052596 (Version 2)
Quarter: 2024Q1

REPORT INFORMATION
  Report Type: Report from Study
  Country: US (occurrence: US)
  Receive Date: 20231011
  Receipt Date: 20240216
  Transmission Date: 20240410
  Serious: Yes (Hospitalization, Other)
  Sender: FDA-Public Use
  Company Number: US-ABBVIE-5442898

PATIENT
  Sex: Male

DRUGS (2)
  1. SKYRIZI [Suspect]
     Active Substance: RISANKIZUMAB-RZAA
     Indication: Psoriasis
     Route: 058
     Dates: start: 20210305
  2. SKYRIZI [Suspect]
     Active Substance: RISANKIZUMAB-RZAA
     Route: 058
     Dates: start: 20201113

REACTIONS (9)
  - Precancerous skin lesion [Recovering/Resolving]
  - Fatigue [Unknown]
  - Back pain [Recovered/Resolved]
  - Ear infection [Recovering/Resolving]
  - Coronary arterial stent insertion [Recovered/Resolved]
  - Precancerous skin lesion [Recovered/Resolved]
  - Sepsis [Recovered/Resolved]
  - Diarrhoea [Unknown]
  - Arthralgia [Recovered/Resolved]

NARRATIVE: CASE EVENT DATE: 20230101
